FAERS Safety Report 10776985 (Version 1)
Quarter: 2015Q1

REPORT INFORMATION
  Report Type: Spontaneous
  Country: US (occurrence: None)
  Receive Date: 20150206
  Receipt Date: 20150206
  Transmission Date: 20150721
  Serious: No
  Sender: FDA-Public Use
  Company Number: None

PATIENT
  Age: 63 Year
  Sex: Female
  Weight: 126.1 kg

DRUGS (1)
  1. TAMIFLU [Suspect]
     Active Substance: OSELTAMIVIR PHOSPHATE
     Indication: INFLUENZA
     Dosage: 1 PILL
     Route: 048
     Dates: start: 20150201, end: 20150204

REACTIONS (9)
  - Productive cough [None]
  - Dyspnoea [None]
  - Aphthous stomatitis [None]
  - Cough [None]
  - Gastrooesophageal reflux disease [None]
  - Muscle strain [None]
  - Eructation [None]
  - Diarrhoea [None]
  - Headache [None]

NARRATIVE: CASE EVENT DATE: 20150204
